FAERS Safety Report 21194303 (Version 1)
Quarter: 2022Q3

REPORT INFORMATION
  Report Type: Spontaneous
  Country: US (occurrence: None)
  Receive Date: 20220809
  Receipt Date: 20220809
  Transmission Date: 20221027
  Serious: Yes (Death)
  Sender: FDA-Public Use
  Company Number: None

PATIENT
  Age: 64 Year
  Sex: Male
  Weight: 73.2 kg

DRUGS (1)
  1. GASTROGRAFIN [Suspect]
     Active Substance: DIATRIZOATE MEGLUMINE\DIATRIZOATE SODIUM
     Indication: Abdominal pain
     Dosage: OTHER FREQUENCY : ONCE;?
     Route: 048
     Dates: start: 20220730, end: 20220730

REACTIONS (6)
  - Cardiac arrest [None]
  - Anaphylactic shock [None]
  - Procedural complication [None]
  - Ejection fraction decreased [None]
  - Pleural effusion [None]
  - Drug hypersensitivity [None]

NARRATIVE: CASE EVENT DATE: 20220730
